FAERS Safety Report 12809236 (Version 1)
Quarter: 2016Q4

REPORT INFORMATION
  Report Type: Spontaneous
  Country: US (occurrence: US)
  Receive Date: 20161004
  Receipt Date: 20161004
  Transmission Date: 20170207
  Serious: No
  Sender: FDA-Public Use
  Company Number: US-ASTRAZENECA-2016SF03082

PATIENT
  Age: 46 Year
  Sex: Female

DRUGS (2)
  1. OPIOID [Concomitant]
     Active Substance: UNSPECIFIED INGREDIENT
  2. MOVANTIK [Suspect]
     Active Substance: NALOXEGOL OXALATE
     Dosage: 25.0MG UNKNOWN
     Route: 048

REACTIONS (1)
  - Therapeutic response changed [Unknown]
